FAERS Safety Report 5500158-7 (Version None)
Quarter: 2007Q4

REPORT INFORMATION
  Report Type: 
  Country: None (occurrence: None)
  Receive Date: 20071025
  Receipt Date: 20071010
  Transmission Date: 20080405
  Serious: Yes (Other)
  Sender: FDA-Public Use
  Company Number: CAP07000390

PATIENT
  Age: 59 Year
  Sex: Female

DRUGS (7)
  1. ACTONEL [Suspect]
     Indication: OSTEOPOROSIS
     Dosage: 35 MG ONCE WEEKLY, ORAL
     Route: 048
     Dates: start: 20050101
  2. TOPAMAX [Concomitant]
  3. INDAPAMIDE [Concomitant]
  4. SIMVASTATIN [Concomitant]
  5. CALCIUM (CALCIUM) [Concomitant]
  6. VITAMIN D /00107901/ (ERGOCALCIFEROL) [Concomitant]
  7. CENTRUM SILVER /01292501/ (ZINC, VITAMINS NOS, VITAMIN B NOS, TOCOPHER [Concomitant]

REACTIONS (3)
  - BRAIN NEOPLASM BENIGN [None]
  - CONVULSION [None]
  - NEOPLASM PROGRESSION [None]
